FAERS Safety Report 17748897 (Version 1)
Quarter: 2020Q2

REPORT INFORMATION
  Report Type: Spontaneous
  Country: US (occurrence: US)
  Receive Date: 20200505
  Receipt Date: 20200505
  Transmission Date: 20200714
  Serious: No
  Sender: FDA-Public Use
  Company Number: US-ROCHE-2510268

PATIENT
  Sex: Female

DRUGS (1)
  1. ESBRIET [Suspect]
     Active Substance: PIRFENIDONE
     Indication: IDIOPATHIC PULMONARY FIBROSIS
     Route: 048
     Dates: start: 20191115

REACTIONS (7)
  - Food allergy [Unknown]
  - Headache [Unknown]
  - Constipation [Unknown]
  - Fatigue [Unknown]
  - Insomnia [Unknown]
  - Chromaturia [Unknown]
  - Migraine [Unknown]
